FAERS Safety Report 4958565-7 (Version None)
Quarter: 2006Q1

REPORT INFORMATION
  Report Type: 
  Country: None (occurrence: None)
  Receive Date: 20060127
  Receipt Date: 20050802
  Transmission Date: 20060701
  Serious: Yes (Hospitalization)
  Sender: FDA-Public Use
  Company Number: 05-08-1369

PATIENT
  Sex: Male

DRUGS (1)
  1. CLOZAPINE [Suspect]
     Dosage: 50-500MG QD, ORAL
     Route: 048
     Dates: start: 19991001, end: 20050301

REACTIONS (6)
  - CONSTIPATION [None]
  - DIZZINESS [None]
  - HYPERTENSION [None]
  - OBSESSIVE-COMPULSIVE PERSONALITY DISORDER [None]
  - PAIN IN EXTREMITY [None]
  - PSYCHOTIC DISORDER [None]
